FAERS Safety Report 11965007 (Version 1)
Quarter: 2016Q1

REPORT INFORMATION
  Report Type: Other
  Country: GB (occurrence: GB)
  Receive Date: 20160127
  Receipt Date: 20160127
  Transmission Date: 20160526
  Serious: Yes (Other)
  Sender: FDA-Public Use
  Company Number: GB-MACLEODS PHARMACEUTICALS US LTD-MAC2016002357

PATIENT

DRUGS (1)
  1. CLOPIDOGREL [Suspect]
     Active Substance: CLOPIDOGREL BISULFATE
     Indication: ANTIPLATELET THERAPY
     Dosage: 75 MG, QD
     Route: 065
     Dates: end: 20151222

REACTIONS (5)
  - Vascular injury [Recovering/Resolving]
  - Dyspnoea [Recovering/Resolving]
  - Increased tendency to bruise [Recovering/Resolving]
  - Croup infectious [Recovering/Resolving]
  - Cough [Recovering/Resolving]
